FAERS Safety Report 11081157 (Version 3)
Quarter: 2015Q3

REPORT INFORMATION
  Report Type: Spontaneous
  Country: US (occurrence: None)
  Receive Date: 20150429
  Receipt Date: 20150902
  Transmission Date: 20151125
  Serious: Yes (Hospitalization, Other)
  Sender: FDA-Public Use
  Company Number: DSU-2014-127589

PATIENT
  Age: 62 Year
  Sex: Female
  Weight: 88.4 kg

DRUGS (5)
  1. PROTONIX [Concomitant]
     Active Substance: PANTOPRAZOLE SODIUM
  2. PRAVASTATIN [Concomitant]
     Active Substance: PRAVASTATIN\PRAVASTATIN SODIUM
  3. BENICAR [Suspect]
     Active Substance: OLMESARTAN MEDOXOMIL
     Indication: HYPERTENSION
     Dates: start: 2012
  4. TOPROL (METOPROLOL SUCCINATE) [Concomitant]
  5. BENICAR HCT [Suspect]
     Active Substance: HYDROCHLOROTHIAZIDE\OLMESARTAN MEDOXOMIL
     Indication: HYPERTENSION
     Route: 048
     Dates: start: 20040210, end: 200611

REACTIONS (24)
  - Food intolerance [None]
  - Hypertensive crisis [None]
  - Polyp [None]
  - Anaemia [None]
  - Duodenitis [None]
  - Dry mouth [None]
  - Acquired oesophageal web [None]
  - Malabsorption [None]
  - Acne [None]
  - Haemorrhoids [None]
  - Gastrooesophageal reflux disease [None]
  - Memory impairment [None]
  - Emotional distress [None]
  - Rash [None]
  - Headache [None]
  - Amnesia [None]
  - Hiatus hernia [None]
  - Hypotension [None]
  - Gastrointestinal tract adenoma [None]
  - Syncope [None]
  - Nephropathy [None]
  - Rash pruritic [None]
  - Stomatitis [None]
  - Reactive gastropathy [None]

NARRATIVE: CASE EVENT DATE: 20080128
